FAERS Safety Report 23080337 (Version 1)
Quarter: 2023Q4

REPORT INFORMATION
  Report Type: Spontaneous
  Country: DE (occurrence: DE)
  Receive Date: 20231018
  Receipt Date: 20231018
  Transmission Date: 20240109
  Serious: Yes (Death, Life-Threatening, Other)
  Sender: FDA-Public Use
  Company Number: DE-AMGEN-DEUSP2023182057

PATIENT
  Age: 72 Year
  Sex: Male

DRUGS (10)
  1. FILGRASTIM [Suspect]
     Active Substance: FILGRASTIM
     Indication: Diffuse large B-cell lymphoma stage IV
     Dosage: UNK (SHORT ACTING G-CSF -FILGRASTIM ON DAY 4 UNTIL GRANULOCYTE REGENERATION)
     Route: 058
     Dates: start: 201801
  2. FILGRASTIM [Suspect]
     Active Substance: FILGRASTIM
     Indication: Neutropenia
  3. FILGRASTIM [Suspect]
     Active Substance: FILGRASTIM
     Indication: Prophylaxis
  4. PREDNISONE [Suspect]
     Active Substance: PREDNISONE
     Indication: Diffuse large B-cell lymphoma stage IV
     Dosage: UNK
     Route: 065
  5. CYCLOPHOSPHAMIDE [Suspect]
     Active Substance: CYCLOPHOSPHAMIDE
     Indication: Diffuse large B-cell lymphoma stage IV
     Dosage: 750 MILLIGRAM/SQ. METER (COMPLETED SIX COURSES OF RGX4. CHOP-1 4)
     Route: 065
  6. RITUXIMAB [Suspect]
     Active Substance: RITUXIMAB
     Indication: Diffuse large B-cell lymphoma stage IV
     Dosage: 375 MILLIGRAM/SQ. METER, CYCLICAL CYCLE (HEMOTHERAPEUTIC-FREE PCYCL 123-CA TRIAL; DAY 1, CYCLICAL)
     Route: 042
  7. DOXORUBICIN [Suspect]
     Active Substance: DOXORUBICIN
     Indication: Diffuse large B-cell lymphoma stage IV
     Dosage: 50 MICROGRAM/SQ. METER
     Route: 065
  8. VINCRISTINE [Suspect]
     Active Substance: VINCRISTINE
     Indication: Diffuse large B-cell lymphoma stage IV
     Dosage: 1 MILLIGRAM (COMPLETED SIX COURSES OF R-CHOP-1 4 DAY 1)
     Route: 042
  9. IBRUTINIB [Concomitant]
     Active Substance: IBRUTINIB
     Indication: Diffuse large B-cell lymphoma
     Dosage: 560 MILLIGRAM, QD
     Route: 048
  10. LENALIDOMIDE [Concomitant]
     Active Substance: LENALIDOMIDE
     Indication: Diffuse large B-cell lymphoma stage IV
     Dosage: 20 MILLIGRAM (DAYS 1, 21 OF EACH 28-DAY CYCLE)
     Route: 048

REACTIONS (6)
  - Acute myelomonocytic leukaemia [Fatal]
  - Diffuse large B-cell lymphoma refractory [Fatal]
  - Neutropenia [Recovering/Resolving]
  - Diffuse large B-cell lymphoma recurrent [Unknown]
  - General physical health deterioration [Unknown]
  - Gene mutation [Unknown]

NARRATIVE: CASE EVENT DATE: 20180101
